FAERS Safety Report 23931158 (Version 2)
Quarter: 2024Q2

REPORT INFORMATION
  Report Type: Spontaneous
  Country: US (occurrence: US)
  Receive Date: 20240603
  Receipt Date: 20240614
  Transmission Date: 20240715
  Serious: No
  Sender: FDA-Public Use
  Company Number: US-AMGEN-USASP2024106334

PATIENT
  Age: 46 Year
  Sex: Female
  Weight: 60.408 kg

DRUGS (3)
  1. TEPEZZA [Suspect]
     Active Substance: TEPROTUMUMAB-TRBW
     Indication: Toxic goitre
     Dosage: (INFUSE 25.2 ML) 1200 MILLIGRAM, Q3WK
     Route: 042
  2. STERILE WATER [Concomitant]
     Active Substance: WATER
     Dosage: 10 MILLILITER
  3. SODIUM CHLORIDE [Concomitant]
     Active Substance: SODIUM CHLORIDE
     Dosage: 25.2 MILLILITER

REACTIONS (4)
  - White blood cell count decreased [Unknown]
  - Back pain [Unknown]
  - Off label use [Unknown]
  - Withdrawal syndrome [Unknown]

NARRATIVE: CASE EVENT DATE: 20240201
